FAERS Safety Report 4543223-3 (Version None)
Quarter: 2005Q1

REPORT INFORMATION
  Report Type: 
  Country: None (occurrence: None)
  Receive Date: 20050103
  Receipt Date: 20041222
  Transmission Date: 20050727
  Serious: Yes (Other)
  Sender: FDA-Public Use
  Company Number: JP-BRISTOL-MYERS SQUIBB COMPANY-12807350

PATIENT
  Age: 76 Year
  Sex: Female

DRUGS (5)
  1. GATIFLO TABS 100 MG [Suspect]
     Indication: URINARY TRACT INFECTION
     Route: 048
     Dates: start: 20041219, end: 20041219
  2. URSO 250 [Concomitant]
     Route: 048
     Dates: start: 20040617
  3. MAGNESIUM OXIDE [Concomitant]
     Route: 048
     Dates: start: 20040617
  4. PURSENNID [Concomitant]
     Route: 048
     Dates: start: 20040617
  5. AMARYL [Concomitant]
     Route: 048
     Dates: start: 20040617

REACTIONS (1)
  - HYPERGLYCAEMIA [None]
